FAERS Safety Report 6327437-8 (Version None)
Quarter: 2009Q3

REPORT INFORMATION
  Report Type: 
  Country: None (occurrence: None)
  Receive Date: 20090825
  Receipt Date: 20090812
  Transmission Date: 20100115
  Serious: Yes (Hospitalization)
  Sender: FDA-Public Use
  Company Number: US-ROCHE-650531

PATIENT
  Age: 58 Year
  Sex: Female

DRUGS (2)
  1. PEGASYS [Suspect]
     Indication: HEPATITIS C
     Dosage: MISSED DOSE ON 10 AUG 2009
     Route: 058
     Dates: start: 20090501
  2. COPEGUS [Suspect]
     Indication: HEPATITIS C
     Route: 065
     Dates: start: 20090501

REACTIONS (5)
  - EPISTAXIS [None]
  - FEELING HOT [None]
  - LACRIMATION INCREASED [None]
  - SKIN HAEMORRHAGE [None]
  - TRANSFUSION [None]
